FAERS Safety Report 8774045 (Version 1)
Quarter: 2012Q4

REPORT INFORMATION
  Report Type: Report from Study
  Country: DE (occurrence: DE)
  Receive Date: 20120907
  Receipt Date: 20120907
  Transmission Date: 20130627
  Serious: Yes (Hospitalization)
  Sender: FDA-Public Use
  Company Number: DE-JNJFOC-20120812645

PATIENT
  Age: 62 Year
  Sex: Male
  Weight: 113 kg

DRUGS (3)
  1. SIMPONI [Suspect]
     Indication: PSORIATIC ARTHROPATHY
     Route: 058
     Dates: start: 20100701
  2. PREDNISOLONE [Concomitant]
  3. PREDNISOLONE [Concomitant]
     Dosage: with gradual reduction until FEB-2012
     Dates: start: 201111, end: 201202

REACTIONS (1)
  - Inflammation [Recovering/Resolving]
